FAERS Safety Report 8098296-0 (Version None)
Quarter: 2012Q1

REPORT INFORMATION
  Report Type: 
  Country: None (occurrence: None)
  Receive Date: 20120128
  Receipt Date: 20110807
  Transmission Date: 20120608
  Serious: No
  Sender: FDA-Public Use
  Company Number: US-ABBOTT-11P-163-0844748-00

PATIENT
  Age: 35 Year
  Sex: Female

DRUGS (5)
  1. ZYRTEC [Concomitant]
     Indication: HYPERSENSITIVITY
     Dosage: OTC
  2. HUMIRA [Suspect]
     Indication: CROHN'S DISEASE
     Dates: start: 20110412, end: 20110711
  3. PROBIOTIC [Concomitant]
     Indication: PRODUCT USED FOR UNKNOWN INDICATION
     Dosage: DAILY
  4. MULTI-VITAMINS [Concomitant]
     Indication: PRODUCT USED FOR UNKNOWN INDICATION
     Dosage: DAILY
  5. IMURAN [Concomitant]
     Indication: CROHN'S DISEASE
     Dosage: 1 PILL DAILY

REACTIONS (1)
  - ANAL ABSCESS [None]
